FAERS Safety Report 14655238 (Version 1)
Quarter: 2018Q1

REPORT INFORMATION
  Report Type: Spontaneous
  Country: IT (occurrence: IT)
  Receive Date: 20180319
  Receipt Date: 20180319
  Transmission Date: 20180509
  Serious: Yes (Other)
  Sender: FDA-Public Use
  Company Number: IT-DSJP-DSE-2018-109987

PATIENT

DRUGS (1)
  1. LIXIANA [Suspect]
     Active Substance: EDOXABAN TOSYLATE
     Indication: ATRIAL FIBRILLATION
     Dosage: 30 MG, QD
     Route: 048
     Dates: start: 20180303, end: 20180307

REACTIONS (3)
  - Hypersensitivity [Recovering/Resolving]
  - Pruritus [Recovering/Resolving]
  - Oedema peripheral [Recovering/Resolving]

NARRATIVE: CASE EVENT DATE: 20180307
